FAERS Safety Report 11930009 (Version 1)
Quarter: 2016Q1

REPORT INFORMATION
  Report Type: Report from Study
  Country: US (occurrence: US)
  Receive Date: 20160120
  Receipt Date: 20160120
  Transmission Date: 20160526
  Serious: Yes (Death)
  Sender: FDA-Public Use
  Company Number: PHEH2016US001240

PATIENT
  Sex: Male

DRUGS (1)
  1. AFINITOR [Suspect]
     Active Substance: EVEROLIMUS
     Indication: OESOPHAGEAL CARCINOMA
     Dosage: 10 MG, UNK
     Route: 065

REACTIONS (2)
  - Death [Fatal]
  - Product use issue [Unknown]
